FAERS Safety Report 7668844-0 (Version None)
Quarter: 2011Q3

REPORT INFORMATION
  Report Type: 
  Country: None (occurrence: None)
  Receive Date: 20110808
  Receipt Date: 20110729
  Transmission Date: 20111222
  Serious: Yes (Life-Threatening, Hospitalization)
  Sender: FDA-Public Use
  Company Number: JP-PFIZER INC-2011151736

PATIENT
  Age: 55 Year
  Sex: Female
  Weight: 50 kg

DRUGS (6)
  1. VANCOMYCIN [Suspect]
     Dosage: 0.5 G, 1X/DAY
     Route: 041
     Dates: start: 20100615, end: 20100806
  2. VANCOMYCIN [Suspect]
     Dosage: 0.5 G, 1X/DAY
     Route: 041
     Dates: start: 20100812, end: 20100819
  3. ZYVOX [Suspect]
     Indication: ARTHRITIS
     Dosage: 600 MG, 1X/DAY
     Route: 041
     Dates: start: 20100820, end: 20100824
  4. RHEUMATREX [Suspect]
     Indication: RHEUMATOID ARTHRITIS
     Dosage: 2 MG, 2X/DAY
     Route: 048
     Dates: start: 20080101, end: 20100825
  5. SULFAMETHOXAZOLE [Suspect]
     Indication: PROPHYLAXIS
     Dosage: S/T:400MG/80MG X 2/DAY
     Route: 048
     Dates: start: 20100819, end: 20100824
  6. ZYVOX [Suspect]
     Dosage: 600 MG, 2X/DAY
     Route: 041
     Dates: start: 20100825, end: 20100829

REACTIONS (2)
  - HISTIOCYTOSIS HAEMATOPHAGIC [None]
  - PANCYTOPENIA [None]
